FAERS Safety Report 11690600 (Version 2)
Quarter: 2015Q4

REPORT INFORMATION
  Report Type: Report from Study
  Country: FR (occurrence: FR)
  Receive Date: 20151102
  Receipt Date: 20151109
  Transmission Date: 20160304
  Serious: Yes (Death, Other)
  Sender: FDA-Public Use
  Company Number: FR-BRISTOL-MYERS SQUIBB COMPANY-BMS-2015-074386

PATIENT
  Sex: Male
  Weight: 61 kg

DRUGS (6)
  1. NIVOLUMAB [Suspect]
     Active Substance: NIVOLUMAB
     Dosage: 200 MG, UNK
     Route: 065
     Dates: start: 20150911
  2. TRAMADOL. [Concomitant]
     Active Substance: TRAMADOL
     Indication: PAIN
     Dosage: 100 MG, Q8H
     Route: 065
     Dates: start: 20150903, end: 20150909
  3. NIVOLUMAB [Suspect]
     Active Substance: NIVOLUMAB
     Indication: MALIGNANT MELANOMA
     Dosage: 210 MG, UNK
     Route: 065
     Dates: start: 20150814
  4. NIVOLUMAB [Suspect]
     Active Substance: NIVOLUMAB
     Dosage: 210 MG, UNK
     Route: 065
     Dates: start: 20150828
  5. SOLU-MEDROL [Concomitant]
     Active Substance: METHYLPREDNISOLONE SODIUM SUCCINATE
     Indication: INTRACRANIAL PRESSURE INCREASED
     Dosage: 100 MG, UNK
     Route: 042
     Dates: start: 20150903, end: 20150920
  6. EUPANTOL [Concomitant]
     Active Substance: PANTOPRAZOLE SODIUM
     Indication: PROPHYLAXIS
     Dosage: 40 MG, UNK
     Route: 042
     Dates: start: 20150903, end: 20150920

REACTIONS (4)
  - Coma [Fatal]
  - General physical health deterioration [Fatal]
  - Altered state of consciousness [Fatal]
  - Malignant neoplasm progression [Fatal]
